FAERS Safety Report 7786237-2 (Version None)
Quarter: 2011Q3

REPORT INFORMATION
  Report Type: 
  Country: None (occurrence: None)
  Receive Date: 20110929
  Receipt Date: 20110920
  Transmission Date: 20111222
  Serious: Yes (Hospitalization)
  Sender: FDA-Public Use
  Company Number: BR-MEDIMMUNE-MEDI-0013576

PATIENT
  Sex: Female
  Weight: 5 kg

DRUGS (7)
  1. OMEPRAZOLE [Concomitant]
     Route: 048
  2. DOMPERIDONE [Concomitant]
     Route: 048
  3. SPIRONOLACTONE [Concomitant]
     Route: 048
  4. FLUTICASONE PROPIONATE [Concomitant]
     Route: 048
  5. SYNAGIS [Suspect]
     Indication: CARDIAC DISORDER
     Dates: start: 20110515, end: 20110515
  6. CAPTOPRIL [Concomitant]
     Route: 048
  7. FUROSEMIDE [Concomitant]
     Route: 048

REACTIONS (5)
  - INFLUENZA [None]
  - EAR INFECTION [None]
  - ASTHMATIC CRISIS [None]
  - WEIGHT GAIN POOR [None]
  - BRONCHIOLITIS [None]
